FAERS Safety Report 9997656 (Version 1)
Quarter: 2014Q1

REPORT INFORMATION
  Report Type: Spontaneous
  Country: US (occurrence: US)
  Receive Date: 20140311
  Receipt Date: 20140311
  Transmission Date: 20141002
  Serious: Yes (Other)
  Sender: FDA-Public Use
  Company Number: US-PFIZER INC-2014064655

PATIENT
  Age: 19 Day
  Sex: Female
  Weight: 6 kg

DRUGS (2)
  1. LIPITOR [Suspect]
     Indication: HYPERLIPIDAEMIA
     Dosage: 10 MG, DAILY
     Dates: start: 20140125, end: 20140302
  2. LOVAZA [Suspect]
     Indication: HYPERLIPIDAEMIA
     Dosage: UNK
     Dates: start: 20140225, end: 20140302

REACTIONS (2)
  - Off label use [Unknown]
  - Transaminases increased [Unknown]
